FAERS Safety Report 13406937 (Version 2)
Quarter: 2017Q2

REPORT INFORMATION
  Report Type: Report from Study
  Country: FR (occurrence: FR)
  Receive Date: 20170405
  Receipt Date: 20170417
  Transmission Date: 20170830
  Serious: Yes (Hospitalization, Other)
  Sender: FDA-Public Use
  Company Number: FR-JNJFOC-20170334195

PATIENT
  Age: 3 Decade
  Sex: Female
  Weight: 120 kg

DRUGS (4)
  1. STELARA [Suspect]
     Active Substance: USTEKINUMAB
     Indication: PSORIASIS
     Route: 058
  2. STELARA [Suspect]
     Active Substance: USTEKINUMAB
     Indication: PSORIASIS
     Route: 058
     Dates: start: 201401
  3. NERISONE [Concomitant]
     Active Substance: DIFLUCORTOLONE VALERATE
     Route: 065
  4. LOCAPRED [Concomitant]
     Active Substance: DESONIDE
     Route: 065
     Dates: start: 20131023

REACTIONS (2)
  - Facial paralysis [Recovered/Resolved]
  - Nasopharyngitis [Unknown]
